FAERS Safety Report 9702219 (Version 5)
Quarter: 2013Q4

REPORT INFORMATION
  Report Type: Spontaneous
  Country: JP (occurrence: JP)
  Receive Date: 20131121
  Receipt Date: 20131227
  Transmission Date: 20140711
  Serious: Yes (Hospitalization)
  Sender: FDA-Public Use
  Company Number: JP-BAYER-2013-141508

PATIENT
  Age: 56 Year
  Sex: Male

DRUGS (1)
  1. STIVARGA [Suspect]
     Indication: COLORECTAL CANCER
     Dosage: 160 MG, QD
     Route: 048
     Dates: start: 20131028, end: 20131110

REACTIONS (1)
  - Interstitial lung disease [Recovered/Resolved]
